FAERS Safety Report 5897458-8 (Version None)
Quarter: 2008Q3

REPORT INFORMATION
  Report Type: 
  Country: None (occurrence: None)
  Receive Date: 20080925
  Receipt Date: 20080919
  Transmission Date: 20090109
  Serious: Yes (Disabling)
  Sender: FDA-Public Use
  Company Number: GB-WYE-G02196408

PATIENT
  Age: 62 Year
  Sex: Female

DRUGS (6)
  1. VENLAFAXINE HYDROCHLORIDE [Suspect]
     Dosage: 225 MG FREQUENCY UNKNOWN
     Dates: start: 20070601
  2. PROPRANOLOL [Concomitant]
     Dosage: UNKNOWN
     Route: 048
  3. OMEPRAZOLE [Concomitant]
     Route: 048
  4. METOCLOPRAMIDE [Concomitant]
     Route: 048
  5. BECLOMETHASONE DIPROPIONATE [Concomitant]
     Dosage: UNKNOWN
     Route: 055
  6. LOFEPRAMINE [Concomitant]
     Route: 048
     Dates: end: 20070601

REACTIONS (2)
  - DYSPHASIA [None]
  - TARDIVE DYSKINESIA [None]
